FAERS Safety Report 8827972 (Version 1)
Quarter: 2012Q4

REPORT INFORMATION
  Report Type: 
  Country: DE (occurrence: DE)
  Receive Date: 20121005
  Receipt Date: 20121005
  Transmission Date: 20130627
  Serious: Yes (Hospitalization)
  Sender: FDA-Public Use
  Company Number: DE-UCBSA-068125

PATIENT
  Sex: Female

DRUGS (12)
  1. VIMPAT [Suspect]
     Dosage: 50
     Dates: end: 2012
  2. DITIAZEM [Concomitant]
     Dosage: 45 MG
  3. IVABRADINE [Concomitant]
     Dosage: 7.5 MG
  4. L-THYROXINE [Concomitant]
     Dosage: 50
  5. THEOPHYLLINE [Concomitant]
     Dosage: 200-0-375
  6. TRILEPTAL [Concomitant]
     Dosage: 600 MG ,0.5 MG IN THE MORNING
  7. DECORTIN [Concomitant]
     Dosage: 10 MG
  8. IDEOS [Concomitant]
  9. SEROQUEL [Concomitant]
     Dosage: 25 MG
  10. OXYS [Concomitant]
     Dosage: 12 MCG
  11. FLUTIDE [Concomitant]
  12. PERENTEROL [Concomitant]

REACTIONS (3)
  - Ileus [Unknown]
  - Migraine [Unknown]
  - Gastritis [Unknown]
